FAERS Safety Report 18547660 (Version 1)
Quarter: 2020Q4

REPORT INFORMATION
  Report Type: Spontaneous
  Country: SI (occurrence: SI)
  Receive Date: 20201126
  Receipt Date: 20201126
  Transmission Date: 20210114
  Serious: Yes (Death, Life-Threatening, Hospitalization, Other)
  Sender: FDA-Public Use
  Company Number: SI-ROCHE-2720923

PATIENT
  Sex: Female

DRUGS (2)
  1. CAPECITABINE. [Suspect]
     Active Substance: CAPECITABINE
     Indication: SMALL INTESTINE ADENOCARCINOMA
     Dosage: FOR 14 DAYS FOLLOWED BY ONE WEEK OF PAUSES
     Route: 048
  2. OXALIPLATIN. [Suspect]
     Active Substance: OXALIPLATIN
     Indication: SMALL INTESTINE ADENOCARCINOMA
     Route: 065

REACTIONS (20)
  - Paraesthesia [Unknown]
  - Perforation [Unknown]
  - Ovarian cancer [Unknown]
  - Abdominal pain [Unknown]
  - Metastasis [Unknown]
  - Sepsis [Unknown]
  - Metastases to peritoneum [Unknown]
  - Hydronephrosis [Unknown]
  - Nausea [Unknown]
  - Delirium [Unknown]
  - Depression [Unknown]
  - Anxiety [Unknown]
  - Death [Fatal]
  - Systemic inflammatory response syndrome [Unknown]
  - Restlessness [Unknown]
  - Infection [Unknown]
  - Pain [Unknown]
  - Metastases to liver [Unknown]
  - Ileus [Unknown]
  - Muscle spasms [Unknown]

NARRATIVE: CASE EVENT DATE: 2016
